FAERS Safety Report 8820943 (Version 1)
Quarter: 2012Q4

REPORT INFORMATION
  Report Type: Report from Study
  Country: FR (occurrence: FR)
  Receive Date: 20121002
  Receipt Date: 20121002
  Transmission Date: 20130627
  Serious: Yes (Hospitalization)
  Sender: FDA-Public Use
  Company Number: FR-ROCHE-1132277

PATIENT
  Age: 71 Year
  Sex: Female
  Weight: 65 kg

DRUGS (27)
  1. ROACTEMRA [Suspect]
     Indication: RHEUMATOID ARTHRITIS
     Route: 042
     Dates: start: 20101105
  2. ROACTEMRA [Suspect]
     Route: 042
     Dates: start: 20101203
  3. ROACTEMRA [Suspect]
     Route: 042
     Dates: start: 20110105
  4. ROACTEMRA [Suspect]
     Route: 042
     Dates: start: 20110207
  5. ROACTEMRA [Suspect]
     Route: 042
     Dates: start: 20110308
  6. ROACTEMRA [Suspect]
     Route: 042
     Dates: start: 20110411
  7. ROACTEMRA [Suspect]
     Route: 042
     Dates: start: 20110530
  8. ROACTEMRA [Suspect]
     Route: 042
     Dates: start: 20110530
  9. ROACTEMRA [Suspect]
     Route: 042
     Dates: start: 20110726
  10. ROACTEMRA [Suspect]
     Route: 042
     Dates: start: 20110824
  11. ROACTEMRA [Suspect]
     Route: 042
     Dates: start: 20110921
  12. ROACTEMRA [Suspect]
     Route: 042
     Dates: start: 20111019
  13. ROACTEMRA [Suspect]
     Route: 042
     Dates: start: 20111114
  14. CORTANCYL [Concomitant]
     Route: 048
  15. PLAVIX [Concomitant]
     Route: 065
  16. TRIATEC [Concomitant]
  17. SEROPLEX [Concomitant]
     Route: 065
  18. OGAST [Concomitant]
     Route: 065
  19. CARDENSIEL [Concomitant]
     Route: 065
  20. ALDACTONE [Concomitant]
  21. CRESTOR [Concomitant]
     Route: 065
  22. KENZEN [Concomitant]
  23. ZOLPIDEM [Concomitant]
     Route: 065
  24. LASILIX [Concomitant]
     Route: 065
  25. BROMAZEPAM [Concomitant]
     Route: 065
  26. ZALDIAR [Concomitant]
     Dosage: 37.5/325
     Route: 065
  27. KALEORID [Concomitant]

REACTIONS (6)
  - Ankle fracture [Recovered/Resolved]
  - Aphthous stomatitis [Recovered/Resolved]
  - Dermatitis [Recovered/Resolved]
  - Leukopenia [Recovered/Resolved]
  - Gastroenteritis [Recovered/Resolved]
  - Tracheitis [Recovered/Resolved]
